FAERS Safety Report 21070925 (Version 2)
Quarter: 2022Q3

REPORT INFORMATION
  Report Type: Spontaneous
  Country: KR (occurrence: KR)
  Receive Date: 20220712
  Receipt Date: 20220715
  Transmission Date: 20221027
  Serious: Yes (Other)
  Sender: FDA-Public Use
  Company Number: KR-LUNDBECK-DKLU3049904

PATIENT
  Age: 47 Year
  Sex: Female

DRUGS (7)
  1. BRINTELLIX [Suspect]
     Active Substance: VORTIOXETINE HYDROBROMIDE
     Indication: Product used for unknown indication
     Dosage: UNK
     Route: 065
     Dates: start: 20211008
  2. BRINTELLIX [Suspect]
     Active Substance: VORTIOXETINE HYDROBROMIDE
     Dosage: 15 MILLIGRAM
     Route: 065
     Dates: start: 202204
  3. BRINTELLIX [Suspect]
     Active Substance: VORTIOXETINE HYDROBROMIDE
     Dosage: 20 MILLIGRAM
     Route: 065
     Dates: start: 20220530
  4. QUETIAPINE [Concomitant]
     Active Substance: QUETIAPINE
     Indication: Sleep disorder
     Dosage: 25 MILLIGRAM
     Route: 065
     Dates: start: 20211008
  5. QUETIAPINE [Concomitant]
     Active Substance: QUETIAPINE
     Dosage: 37.5 MILLIGRAM
     Route: 065
     Dates: start: 20220627
  6. RIVOTRIL [Concomitant]
     Active Substance: CLONAZEPAM
     Indication: Product used for unknown indication
     Dosage: 0.5 MILLIGRAM
     Route: 065
     Dates: start: 20220502
  7. RIVOTRIL [Concomitant]
     Active Substance: CLONAZEPAM
     Dosage: 0.75 MILLIGRAM
     Route: 065
     Dates: start: 20220627

REACTIONS (1)
  - Hallucination, auditory [Unknown]
